FAERS Safety Report 8553372-0 (Version None)
Quarter: 2012Q3

REPORT INFORMATION
  Report Type: 
  Country: None (occurrence: None)
  Receive Date: 20120731
  Receipt Date: 20120730
  Transmission Date: 20120928
  Serious: Yes (Hospitalization, Other)
  Sender: FDA-Public Use
  Company Number: PL-BAYER-2012-057168

PATIENT
  Age: 30 Year
  Sex: Female

DRUGS (1)
  1. BETASERON [Suspect]
     Indication: MULTIPLE SCLEROSIS
     Dosage: 250 ?G, UNK
     Route: 058
     Dates: start: 20101027, end: 20120301

REACTIONS (5)
  - PYODERMA [None]
  - PSYCHOTIC DISORDER [None]
  - NERVOUS SYSTEM DISORDER [None]
  - SCHIZOPHRENIA [None]
  - CATATONIA [None]
